FAERS Safety Report 7478205-5 (Version None)
Quarter: 2011Q2

REPORT INFORMATION
  Report Type: 
  Country: None (occurrence: None)
  Receive Date: 20110513
  Receipt Date: 20110503
  Transmission Date: 20111010
  Serious: Yes (Hospitalization, Other)
  Sender: FDA-Public Use
  Company Number: PHHY2011US32561

PATIENT
  Sex: Female

DRUGS (1)
  1. GILENYA [Suspect]
     Indication: RELAPSING-REMITTING MULTIPLE SCLEROSIS
     Dosage: 0.5 MG, QD
     Route: 048
     Dates: start: 20110325, end: 20110414

REACTIONS (6)
  - CONVULSION [None]
  - COGNITIVE DISORDER [None]
  - CEREBELLAR SYNDROME [None]
  - GAIT DISTURBANCE [None]
  - ENCEPHALITIS HERPES [None]
  - CENTRAL NERVOUS SYSTEM LESION [None]
